FAERS Safety Report 25907281 (Version 1)
Quarter: 2025Q4

REPORT INFORMATION
  Report Type: Spontaneous
  Country: US (occurrence: US)
  Receive Date: 20251010
  Receipt Date: 20251010
  Transmission Date: 20260118
  Serious: Yes (Hospitalization, Other)
  Sender: GRANULES PHARMACEUTICALS INC
  Company Number: US-GRANULES-US-2025GRALIT00564

PATIENT
  Age: 22 Year
  Sex: Male

DRUGS (6)
  1. ACETAMINOPHEN [Suspect]
     Active Substance: ACETAMINOPHEN
     Indication: Product used for unknown indication
     Dosage: 500 MG OF AROUND FIVE TABLETS THE FOLLOWING MORNING
     Route: 048
  2. ALCOHOL (ALCOHOL) [Concomitant]
     Active Substance: ALCOHOL
     Indication: Product used for unknown indication
     Dosage: THROUGHOUT THE NIGHT ON AN EMPTY STOMACH
     Route: 048
  3. ELEXACAFTOR [Concomitant]
     Active Substance: ELEXACAFTOR
     Indication: Pancreatic failure
     Route: 065
  4. TEZACAFTOR [Concomitant]
     Active Substance: TEZACAFTOR
     Indication: Pancreatic failure
     Route: 065
  5. IVACAFTOR [Concomitant]
     Active Substance: IVACAFTOR
     Indication: Pancreatic failure
     Route: 065
  6. UNSPECIFIED INGREDIENT [Concomitant]
     Active Substance: UNSPECIFIED INGREDIENT
     Indication: Pancreatic failure
     Route: 065

REACTIONS (2)
  - Acute hepatic failure [Recovered/Resolved]
  - Drug-induced liver injury [Recovered/Resolved]
